FAERS Safety Report 24456221 (Version 2)
Quarter: 2024Q4

REPORT INFORMATION
  Report Type: Report from Study
  Country: US (occurrence: US)
  Receive Date: 20241017
  Receipt Date: 20241018
  Transmission Date: 20250115
  Serious: No
  Sender: ROCHE
  Company Number: US-ROCHE-3503056

PATIENT
  Age: 61 Year
  Sex: Female

DRUGS (26)
  1. RITUXAN [Suspect]
     Active Substance: RITUXIMAB
     Indication: Rheumatoid arthritis
     Route: 041
  2. TYLENOL [Concomitant]
     Active Substance: ACETAMINOPHEN
  3. NORVASC [Concomitant]
     Active Substance: AMLODIPINE BESYLATE
  4. LIPITOR [Concomitant]
     Active Substance: ATORVASTATIN CALCIUM
  5. TESSALON [Concomitant]
     Active Substance: BENZONATATE
  6. OMNICEF [Concomitant]
     Active Substance: CEFDINIR
  7. PLAVIX [Concomitant]
     Active Substance: CLOPIDOGREL BISULFATE
  8. VITAMIN B12 [Concomitant]
     Active Substance: CYANOCOBALAMIN
  9. DEPAKOTE [Concomitant]
     Active Substance: DIVALPROEX SODIUM
  10. EPIPEN [Concomitant]
     Active Substance: EPINEPHRINE
  11. FERROUS SULFATE [Concomitant]
     Active Substance: FERROUS SULFATE
  12. EFUDEX [Concomitant]
     Active Substance: FLUOROURACIL
  13. FOLVITE [Concomitant]
     Active Substance: FOLIC ACID
  14. NEURONTIN [Concomitant]
     Active Substance: GABAPENTIN
  15. PLAQUENIL [Concomitant]
     Active Substance: HYDROXYCHLOROQUINE SULFATE
  16. ARAVA [Concomitant]
     Active Substance: LEFLUNOMIDE
  17. SYNTHROID [Concomitant]
     Active Substance: LEVOTHYROXINE SODIUM
  18. METHOTREXATE [Concomitant]
     Active Substance: METHOTREXATE
  19. TOPROL XL [Concomitant]
     Active Substance: METOPROLOL SUCCINATE
  20. NITROSTAT [Concomitant]
     Active Substance: NITROGLYCERIN
  21. PROTONIX [Concomitant]
     Active Substance: PANTOPRAZOLE SODIUM
  22. DELTASONE [Concomitant]
     Active Substance: PREDNISONE
  23. AZULFIDINE [Concomitant]
     Active Substance: SULFASALAZINE
  24. RESTORIL [Concomitant]
     Active Substance: TEMAZEPAM
  25. VIIBRYD [Concomitant]
     Active Substance: VILAZODONE HYDROCHLORIDE
  26. ZOLEDRONIC ACID [Concomitant]
     Active Substance: ZOLEDRONIC ACID

REACTIONS (2)
  - Off label use [Unknown]
  - No adverse event [Unknown]
